FAERS Safety Report 7984486-1 (Version None)
Quarter: 2011Q4

REPORT INFORMATION
  Report Type: 
  Country: None (occurrence: None)
  Receive Date: 20111214
  Receipt Date: 20111205
  Transmission Date: 20120403
  Serious: Yes (Disabling, Other)
  Sender: FDA-Public Use
  Company Number: 2011MA014948

PATIENT
  Age: 39 Year
  Sex: Male

DRUGS (7)
  1. XANAX [Suspect]
  2. BENZODIAZEPINE DERIVATIVES [Concomitant]
  3. METHADONE HCL [Suspect]
  4. DIHYDROCODEINE BITARTRATE INJ [Suspect]
     Indication: PAIN
     Dosage: 30 MG;BID;PO
     Route: 048
  5. GABAPENTIN [Suspect]
  6. CARBAMAZEPINE [Suspect]
     Dosage: QD
  7. HEROIN (DIAMORPHINE) [Suspect]

REACTIONS (1)
  - EPILEPSY [None]
